FAERS Safety Report 6909164-9 (Version None)
Quarter: 2010Q3

REPORT INFORMATION
  Report Type: 
  Country: None (occurrence: None)
  Receive Date: 20100716
  Receipt Date: 20100304
  Transmission Date: 20110219
  Serious: Yes (Other)
  Sender: FDA-Public Use
  Company Number: 2010029080

PATIENT
  Sex: Female

DRUGS (2)
  1. CELEBREX [Suspect]
     Indication: JOINT INJURY
     Dosage: 200 MG. 2X/DAY
     Dates: end: 20100302
  2. CELEBREX [Suspect]
     Indication: SKELETAL INJURY
     Dosage: 200 MG. 2X/DAY
     Dates: end: 20100302

REACTIONS (1)
  - TACHYCARDIA [None]
